FAERS Safety Report 8381798-7 (Version None)
Quarter: 2012Q2

REPORT INFORMATION
  Report Type: 
  Country: None (occurrence: None)
  Receive Date: 20120522
  Receipt Date: 20120522
  Transmission Date: 20120825
  Serious: Yes (Life-Threatening)
  Sender: FDA-Public Use
  Company Number: None

PATIENT
  Age: 44 Year
  Sex: Female
  Weight: 52.1637 kg

DRUGS (2)
  1. LEVOFLOXACIN [Suspect]
     Indication: BRONCHITIS
     Dosage: 500MG ONCE A DAY PO
     Route: 048
     Dates: start: 20120316, end: 20120322
  2. LEVOFLOXACIN [Suspect]
     Indication: SINUSITIS
     Dosage: 500MG ONCE A DAY PO
     Route: 048
     Dates: start: 20120316, end: 20120322

REACTIONS (13)
  - JOINT SWELLING [None]
  - HYPOAESTHESIA [None]
  - SWELLING FACE [None]
  - DECREASED APPETITE [None]
  - DIZZINESS [None]
  - FATIGUE [None]
  - ASTHENIA [None]
  - ARTHRALGIA [None]
  - MYALGIA [None]
  - EYE SWELLING [None]
  - OEDEMA PERIPHERAL [None]
  - PARAESTHESIA [None]
  - PAIN [None]
